FAERS Safety Report 9491893 (Version 2)
Quarter: 2013Q4

REPORT INFORMATION
  Report Type: Spontaneous
  Country: GB (occurrence: None)
  Receive Date: 20130827
  Receipt Date: 20131206
  Transmission Date: 20140711
  Serious: Yes (Hospitalization)
  Sender: FDA-Public Use
  Company Number: FK201303517

PATIENT
  Age: 44 Year
  Sex: Female

DRUGS (15)
  1. PACLITAXEL [Suspect]
     Indication: HER-2 POSITIVE BREAST CANCER
     Dosage: 160 MG, 1 IN 1 WK
     Route: 042
     Dates: start: 20130621
  2. DOCETAXEL [Suspect]
     Indication: HER-2 POSITIVE BREAST CANCER
     Dosage: 150 MG, 1 IN 3 WK, IV
     Route: 042
     Dates: start: 20121009
  3. IBANDRONIC ACID [Concomitant]
  4. BRUFEN (IBUPROFEN) [Concomitant]
  5. DEXAMETHASONE (DEXAMETHASONE) [Concomitant]
  6. DEXCHLORPHENIRAMINE (DEXCHLORPHENIRAMINE) [Concomitant]
  7. FUROSEMIDE (FUROSEMIDE) [Concomitant]
  8. GASTROCOTE (GASTROCOTE /00480201) [Concomitant]
  9. LANSOPRAZOLE (LANSOPRAZOLE) [Concomitant]
  10. LOPERAMIDE (LANSOPRAZOLE) [Concomitant]
  11. METHYLPREDNISOLONE (METHYLPREDNISOLONE) [Concomitant]
  12. PARACETAMOL (PARACETAMOL) [Concomitant]
  13. PERTUZUMAB (PERTUZUMAB) [Concomitant]
  14. RANITIDINE (RANITIDINE) [Concomitant]
  15. TRASTUZUMAB (TRASTUZUMAB) [Concomitant]

REACTIONS (7)
  - Neutropenic sepsis [None]
  - Dyspnoea [None]
  - PO2 decreased [None]
  - Blood pH increased [None]
  - PCO2 decreased [None]
  - Blood bicarbonate decreased [None]
  - Staphylococcus test positive [None]
